FAERS Safety Report 9210463 (Version 2)
Quarter: 2013Q2

REPORT INFORMATION
  Report Type: Other
  Country: BR (occurrence: BR)
  Receive Date: 20130403
  Receipt Date: 20130403
  Transmission Date: 20140414
  Serious: Yes (Disabling)
  Sender: FDA-Public Use
  Company Number: BR-CTI_01567_2013

PATIENT
  Age: 20 Year
  Sex: Female

DRUGS (4)
  1. FACTIVE [Suspect]
     Indication: SINUSITIS
     Dates: start: 20130311, end: 20130317
  2. FACTIVE [Suspect]
     Indication: BRONCHITIS
     Dates: start: 20130311, end: 20130317
  3. RINO-LASTIN [Suspect]
     Indication: RHINITIS
     Dosage: [1 APPLICATION ON EACH NOSTRIL THREE TIMES A DAY]
     Route: 045
     Dates: start: 201203
  4. RINO-LASTIN [Suspect]
     Indication: BRONCHITIS
     Dosage: [1 APPLICATION ON EACH NOSTRIL THREE TIMES A DAY]
     Route: 045
     Dates: start: 201203

REACTIONS (2)
  - Rash generalised [Not Recovered/Not Resolved]
  - Impaired work ability [Not Recovered/Not Resolved]
